FAERS Safety Report 17693328 (Version 1)
Quarter: 2020Q2

REPORT INFORMATION
  Report Type: Spontaneous
  Country: AR (occurrence: AR)
  Receive Date: 20200422
  Receipt Date: 20200422
  Transmission Date: 20200714
  Serious: Yes (Other)
  Sender: FDA-Public Use
  Company Number: AR-PFIZER INC-2020156010

PATIENT
  Age: 45 Year
  Sex: Male

DRUGS (1)
  1. TAFAMIDIS [Suspect]
     Active Substance: TAFAMIDIS MEGLUMINE
     Indication: HEREDITARY NEUROPATHIC AMYLOIDOSIS
     Dosage: 20 MG, DAILY
     Dates: start: 20190610

REACTIONS (6)
  - Loss of personal independence in daily activities [Unknown]
  - Malaise [Unknown]
  - Drug dependence [Unknown]
  - Drug ineffective [Unknown]
  - Weight decreased [Unknown]
  - Disease progression [Unknown]

NARRATIVE: CASE EVENT DATE: 202004
